FAERS Safety Report 5850420-3 (Version None)
Quarter: 2008Q3

REPORT INFORMATION
  Report Type: 
  Country: None (occurrence: None)
  Receive Date: 20080818
  Receipt Date: 20080731
  Transmission Date: 20090109
  Serious: Yes (Other)
  Sender: FDA-Public Use
  Company Number: 8035643

PATIENT
  Age: 87 Year
  Sex: Male
  Weight: 56.81 kg

DRUGS (1)
  1. ZAROXOLYN [Suspect]

REACTIONS (4)
  - APPARENT DEATH [None]
  - ASTHENIA [None]
  - FEELING ABNORMAL [None]
  - HYPOKALAEMIA [None]
